FAERS Safety Report 16839500 (Version 1)
Quarter: 2019Q4

REPORT INFORMATION
  Report Type: Spontaneous
  Country: GB (occurrence: GB)
  Receive Date: 20190921
  Receipt Date: 20190921
  Transmission Date: 20200122
  Serious: Yes (Life-Threatening, Hospitalization)
  Sender: FDA-Public Use
  Company Number: None

PATIENT
  Age: 22 Year
  Sex: Female
  Weight: 60 kg

DRUGS (1)
  1. SERTRALINE [Suspect]
     Active Substance: SERTRALINE HYDROCHLORIDE
     Indication: DEPRESSION
     Dosage: ?          QUANTITY:1 TABLET(S);?
     Route: 048

REACTIONS (8)
  - Anxiety [None]
  - Paranoia [None]
  - Petit mal epilepsy [None]
  - Seizure [None]
  - Urticaria [None]
  - Suicide attempt [None]
  - Mental disorder [None]
  - Insomnia [None]

NARRATIVE: CASE EVENT DATE: 20190402
